FAERS Safety Report 5367240-9 (Version None)
Quarter: 2007Q2

REPORT INFORMATION
  Report Type: 
  Country: None (occurrence: None)
  Receive Date: 20070619
  Receipt Date: 20070619
  Transmission Date: 20071010
  Serious: Yes (Hospitalization)
  Sender: FDA-Public Use
  Company Number: None

PATIENT
  Age: 54 Year
  Sex: Female
  Weight: 66.6788 kg

DRUGS (7)
  1. CETUXIMAB [Suspect]
     Indication: BREAST CANCER METASTATIC
     Dosage: 415 WEEKLY IV
     Route: 042
     Dates: start: 20070308, end: 20070329
  2. CETUXIMAB [Suspect]
     Indication: BREAST CANCER METASTATIC
     Dosage: 415 WEEKLY IV
     Route: 042
     Dates: start: 20070405, end: 20070426
  3. CETUXIMAB [Suspect]
     Indication: BREAST CANCER METASTATIC
     Dosage: 415 WEEKLY IV
     Route: 042
     Dates: start: 20070510
  4. CETUXIMAB [Suspect]
     Indication: BREAST CANCER METASTATIC
     Dosage: 415 WEEKLY IV
     Route: 042
     Dates: start: 20070517
  5. RISPERIDONE MICROSPHERE [Concomitant]
  6. VICODIN [Concomitant]
  7. MORPHINE SULFATE [Concomitant]

REACTIONS (5)
  - ASTHENIA [None]
  - BRAIN MASS [None]
  - HYDROCEPHALUS [None]
  - MENTAL STATUS CHANGES [None]
  - SPINAL CORD COMPRESSION [None]
